FAERS Safety Report 6071785-6 (Version None)
Quarter: 2009Q1

REPORT INFORMATION
  Report Type: 
  Country: None (occurrence: None)
  Receive Date: 20090210
  Receipt Date: 20090129
  Transmission Date: 20090719
  Serious: Yes (Other)
  Sender: FDA-Public Use
  Company Number: PHHY2009PL03539

PATIENT

DRUGS (1)
  1. TEGRETOL [Suspect]
     Dosage: TWO LITRES

REACTIONS (1)
  - ACCIDENTAL DRUG INTAKE BY CHILD [None]
